FAERS Safety Report 6099532-2 (Version None)
Quarter: 2009Q1

REPORT INFORMATION
  Report Type: 
  Country: None (occurrence: None)
  Receive Date: 20090226
  Receipt Date: 20090212
  Transmission Date: 20090719
  Serious: Yes (Death)
  Sender: FDA-Public Use
  Company Number: DAV-AE-MTX-09-004

PATIENT
  Age: 73 Year
  Sex: Female

DRUGS (3)
  1. METHOTREXATE [Suspect]
     Indication: SJOGREN'S SYNDROME
     Dosage: 6 MG/WK
  2. METHOTREXATE [Suspect]
     Indication: SYSTEMIC LUPUS ERYTHEMATOSUS
     Dosage: 6 MG/WK
  3. PREDNISOLONE [Concomitant]

REACTIONS (7)
  - DISSEMINATED INTRAVASCULAR COAGULATION [None]
  - EPISTAXIS [None]
  - HAEMOGLOBIN DECREASED [None]
  - METASTASES TO BONE [None]
  - METASTASES TO LYMPH NODES [None]
  - NEUROENDOCRINE CARCINOMA OF THE SKIN [None]
  - THROMBOCYTOPENIA [None]
